FAERS Safety Report 24197274 (Version 1)
Quarter: 2024Q3

REPORT INFORMATION
  Report Type: Spontaneous
  Country: NL (occurrence: NL)
  Receive Date: 20240810
  Receipt Date: 20240810
  Transmission Date: 20241017
  Serious: Yes (Other)
  Sender: TEVA
  Company Number: None

PATIENT
  Age: 52 Year
  Sex: Female
  Weight: 81 kg

DRUGS (3)
  1. ROPINIROLE [Suspect]
     Active Substance: ROPINIROLE
     Indication: Dopaminergic drug therapy
     Dosage: BRAND NAME NOT SPECIFIED 1X PER DAY 4 MG
     Route: 065
     Dates: start: 20150401
  2. ROPINIROLE [Suspect]
     Active Substance: ROPINIROLE
     Indication: Dopaminergic drug therapy
     Dosage: BRAND NAME NOT SPECIFIED 1X PER DAY 8 MG
     Route: 065
     Dates: start: 20150401
  3. NORTRIPTYLINE [Suspect]
     Active Substance: NORTRIPTYLINE
     Indication: Pain
     Dosage: 1 PIECE ONCE A DAY
     Route: 065
     Dates: start: 20240505, end: 20240526

REACTIONS (3)
  - Hallucination, visual [Recovering/Resolving]
  - Gait disturbance [Recovered/Resolved]
  - Balance disorder [Recovered/Resolved]
